FAERS Safety Report 13946651 (Version 1)
Quarter: 2017Q3

REPORT INFORMATION
  Report Type: Spontaneous
  Country: US (occurrence: US)
  Receive Date: 20170907
  Receipt Date: 20170907
  Transmission Date: 20171128
  Serious: Yes (Hospitalization)
  Sender: FDA-Public Use
  Company Number: US-SA-2017SA160442

PATIENT
  Age: 31 Year
  Sex: Female

DRUGS (5)
  1. QUETIAPINE. [Concomitant]
     Active Substance: QUETIAPINE
  2. DIPHENHYDRAMINE. [Suspect]
     Active Substance: DIPHENHYDRAMINE
     Dosage: 30-50 DIPHENHYDRAMINE TABLETS DAILY
     Route: 048
  3. MIRTAZAPINE. [Concomitant]
     Active Substance: MIRTAZAPINE
  4. FLUPHENAZINE [Concomitant]
     Active Substance: FLUPHENAZINE
     Dosage: DEPOT INJECTION
  5. GABAPENTIN. [Concomitant]
     Active Substance: GABAPENTIN

REACTIONS (25)
  - Intentional overdose [Unknown]
  - Gastrointestinal sounds abnormal [Recovering/Resolving]
  - Muscle twitching [Recovering/Resolving]
  - Hypertension [Recovering/Resolving]
  - Miosis [Recovering/Resolving]
  - Drooling [Recovering/Resolving]
  - Overdose [Unknown]
  - Clonus [Recovering/Resolving]
  - Drug abuse [Unknown]
  - Cholinergic syndrome [Recovering/Resolving]
  - Salivary hypersecretion [Recovered/Resolved]
  - Delirium [Recovering/Resolving]
  - Mental status changes [Recovered/Resolved]
  - Disorientation [Recovering/Resolving]
  - Mucosal dryness [Recovering/Resolving]
  - Hyperreflexia [Recovering/Resolving]
  - Mydriasis [Recovering/Resolving]
  - Decreased appetite [Recovering/Resolving]
  - Agitation [Recovering/Resolving]
  - Hyperhidrosis [Recovered/Resolved]
  - Tremor [Recovering/Resolving]
  - Tachycardia [Recovered/Resolved]
  - Tachypnoea [Recovering/Resolving]
  - Incoherent [Recovering/Resolving]
  - Drug withdrawal syndrome [Unknown]
